FAERS Safety Report 6363027-9 (Version None)
Quarter: 2009Q3

REPORT INFORMATION
  Report Type: 
  Country: None (occurrence: None)
  Receive Date: 20090919
  Receipt Date: 20090623
  Transmission Date: 20100115
  Serious: No
  Sender: FDA-Public Use
  Company Number: US-ABBOTT-09P-163-0580212-00

PATIENT
  Sex: Female
  Weight: 108.51 kg

DRUGS (7)
  1. HUMIRA [Suspect]
     Indication: CROHN'S DISEASE
     Dosage: (160MG LOADING DOSE)
     Route: 058
     Dates: start: 20090529, end: 20090529
  2. HUMIRA [Suspect]
     Dosage: (80MG)
     Route: 058
     Dates: start: 20090614, end: 20090614
  3. HUMIRA [Suspect]
  4. VICODIN [Concomitant]
     Indication: PAIN
     Dates: start: 20080101
  5. VICODIN [Concomitant]
     Indication: CROHN'S DISEASE
  6. ALBUTEROL [Concomitant]
     Indication: ASTHMA
     Route: 055
  7. FERROUS SULFATE TAB [Concomitant]
     Indication: ANAEMIA

REACTIONS (3)
  - INCREASED TENDENCY TO BRUISE [None]
  - INJECTION SITE HAEMATOMA [None]
  - RASH [None]
